FAERS Safety Report 4291832-1 (Version None)
Quarter: 2004Q1

REPORT INFORMATION
  Report Type: 
  Country: None (occurrence: None)
  Receive Date: 20040211
  Receipt Date: 20030617
  Transmission Date: 20041129
  Serious: No
  Sender: FDA-Public Use
  Company Number: US-GLAXOSMITHKLINE-A0412803A

PATIENT
  Age: 49 Year
  Sex: Female

DRUGS (4)
  1. IMITREX [Suspect]
     Indication: MIGRAINE
     Dosage: 6MG AS REQUIRED
     Route: 058
     Dates: start: 20030612
  2. WELLBUTRIN SR [Concomitant]
  3. VALIUM [Concomitant]
  4. NEURONTIN [Concomitant]

REACTIONS (3)
  - DRUG INEFFECTIVE [None]
  - INJECTION SITE BURNING [None]
  - PHARMACEUTICAL PRODUCT COMPLAINT [None]
